FAERS Safety Report 7727266-4 (Version None)
Quarter: 2011Q3

REPORT INFORMATION
  Report Type: 
  Country: None (occurrence: None)
  Receive Date: 20110902
  Receipt Date: 20110823
  Transmission Date: 20111222
  Serious: Yes (Other)
  Sender: FDA-Public Use
  Company Number: US-ELI_LILLY_AND_COMPANY-US201108007123

PATIENT
  Sex: Female
  Weight: 63.855 kg

DRUGS (14)
  1. PREGABALIN [Concomitant]
  2. TRASTUZUMAB [Concomitant]
  3. GAMMAGARD [Concomitant]
  4. TYLENOL W/ CODEINE NO. 3 [Concomitant]
  5. SILICON DIOXIDE [Concomitant]
  6. DESONIDE [Concomitant]
  7. ZOLEDRONIC ACID [Concomitant]
  8. GEMZAR [Suspect]
     Indication: PRODUCT USED FOR UNKNOWN INDICATION
     Dosage: 1 G, UNKNOWN
     Route: 042
  9. HYDROCHLOROTHIAZIDE [Concomitant]
  10. ACYCLOVIR [Concomitant]
  11. MULTI-VITAMIN [Concomitant]
  12. CHLORHEXIDINE GLUCONATE [Concomitant]
  13. LAPATINIB [Concomitant]
     Dosage: 1250 MG, QD
     Route: 048
  14. ATENOLOL [Concomitant]

REACTIONS (6)
  - RED BLOOD CELL COUNT DECREASED [None]
  - WHITE BLOOD CELL COUNT DECREASED [None]
  - FATIGUE [None]
  - ANAEMIA [None]
  - PLATELET COUNT DECREASED [None]
  - NAIL DISORDER [None]
